FAERS Safety Report 8048450-9 (Version None)
Quarter: 2011Q4

REPORT INFORMATION
  Report Type: 
  Country: None (occurrence: None)
  Receive Date: 20111209
  Receipt Date: 20111021
  Transmission Date: 20120403
  Serious: No
  Sender: FDA-Public Use
  Company Number: 2011SP049754

PATIENT
  Age: 50 Year
  Sex: Male
  Weight: 75.7507 kg

DRUGS (5)
  1. VICTRELIS [Suspect]
     Indication: PRODUCT USED FOR UNKNOWN INDICATION
     Dosage: 200 MG;TID; PO
     Route: 048
     Dates: start: 20110921
  2. RIBAVIRIN [Suspect]
     Indication: PRODUCT USED FOR UNKNOWN INDICATION
  3. PEGASYS [Suspect]
     Indication: PRODUCT USED FOR UNKNOWN INDICATION
  4. LASIX [Concomitant]
  5. SPIRONOLACTONE [Concomitant]

REACTIONS (3)
  - NAUSEA [None]
  - DYSGEUSIA [None]
  - WHITE BLOOD CELL COUNT DECREASED [None]
